FAERS Safety Report 6210274-2 (Version None)
Quarter: 2009Q2

REPORT INFORMATION
  Report Type: 
  Country: None (occurrence: None)
  Receive Date: 20090601
  Receipt Date: 20090520
  Transmission Date: 20091009
  Serious: Yes (Hospitalization, Other)
  Sender: FDA-Public Use
  Company Number: CO-PFIZER INC-2008035537

PATIENT
  Age: 65 Year

DRUGS (4)
  1. DETRUSITOL SR [Suspect]
     Indication: POLLAKIURIA
     Route: 048
     Dates: start: 20080409, end: 20080416
  2. LOVASTATIN [Concomitant]
  3. OMEPRAZOLE [Concomitant]
  4. REMERON [Concomitant]

REACTIONS (4)
  - BLADDER CANCER [None]
  - EYE SWELLING [None]
  - METASTASES TO STOMACH [None]
  - OEDEMA PERIPHERAL [None]
